FAERS Safety Report 9140601 (Version 1)
Quarter: 2013Q1

REPORT INFORMATION
  Report Type: Spontaneous
  Country: US (occurrence: US)
  Receive Date: 20130305
  Receipt Date: 20130305
  Transmission Date: 20140127
  Serious: Yes (Death, Hospitalization)
  Sender: FDA-Public Use
  Company Number: US-GLAXOSMITHKLINE-A0790843A

PATIENT
  Age: 43 Year
  Sex: Female
  Weight: 138 kg

DRUGS (2)
  1. AVANDIA [Suspect]
     Indication: TYPE 2 DIABETES MELLITUS
     Route: 048
     Dates: start: 1999
  2. ACTOS [Concomitant]

REACTIONS (2)
  - Acute myocardial infarction [Fatal]
  - Cardiac failure congestive [Unknown]
